FAERS Safety Report 7214745-1 (Version None)
Quarter: 2011Q1

REPORT INFORMATION
  Report Type: 
  Country: None (occurrence: None)
  Receive Date: 20110107
  Receipt Date: 20100119
  Transmission Date: 20110831
  Serious: No
  Sender: FDA-Public Use
  Company Number: A0840301A

PATIENT
  Sex: Female

DRUGS (5)
  1. LOVAZA [Suspect]
     Dosage: 2CAP TWICE PER DAY
     Route: 048
  2. SYNTHROID [Concomitant]
  3. ESTROPIPATE [Concomitant]
  4. PROVERA [Concomitant]
  5. CYTOMEL [Concomitant]

REACTIONS (2)
  - HEADACHE [None]
  - ABDOMINAL DISCOMFORT [None]
